FAERS Safety Report 8964175 (Version 1)
Quarter: 2012Q4

REPORT INFORMATION
  Report Type: 
  Country: CA (occurrence: CA)
  Receive Date: 20121213
  Receipt Date: 20121213
  Transmission Date: 20130627
  Serious: Yes (Life-Threatening, Hospitalization)
  Sender: FDA-Public Use
  Company Number: CA-B.I. PHARMACEUTICALS,INC./RIDGEFIELD-2012-CN-02513CN

PATIENT
  Age: 89 Year
  Sex: Female
  Weight: 55 kg

DRUGS (6)
  1. PRADAX [Suspect]
     Dosage: 220 mg
     Route: 048
  2. ALENDRONATE [Concomitant]
  3. ATIVAN [Concomitant]
  4. CALCIUM + VITAMIN D [Concomitant]
  5. SENOKOT [Concomitant]
  6. VERAPAMIL SR [Concomitant]

REACTIONS (3)
  - Fall [Unknown]
  - Haemothorax [Unknown]
  - Rib fracture [Unknown]
